FAERS Safety Report 4984248-3 (Version None)
Quarter: 2006Q2

REPORT INFORMATION
  Report Type: 
  Country: None (occurrence: None)
  Receive Date: 20060420
  Receipt Date: 20060331
  Transmission Date: 20061013
  Serious: Yes (Other)
  Sender: FDA-Public Use
  Company Number: 2006BH007415

PATIENT
  Age: 9 Year
  Sex: Female

DRUGS (3)
  1. ATROPINE SULFATE [Suspect]
     Dosage: 0.2 MG;IV
     Route: 042
  2. THIOPENTAL SODIUM [Suspect]
     Dosage: 140 MG;IV
     Route: 042
  3. ATRACURIUM BESYLATE [Suspect]
     Dosage: 15 MG;IV
     Route: 042

REACTIONS (3)
  - BUNDLE BRANCH BLOCK LEFT [None]
  - PROCEDURAL COMPLICATION [None]
  - VENTRICULAR TACHYCARDIA [None]
